FAERS Safety Report 19264622 (Version 1)
Quarter: 2021Q2

REPORT INFORMATION
  Report Type: Spontaneous
  Country: US (occurrence: US)
  Receive Date: 20210517
  Receipt Date: 20210517
  Transmission Date: 20210717
  Serious: No
  Sender: FDA-Public Use
  Company Number: None

PATIENT
  Age: 41 Year
  Sex: Female
  Weight: 105.75 kg

DRUGS (2)
  1. MONTELUKAST SOD (GENERIC FOR SINGULAIR) [Suspect]
     Active Substance: MONTELUKAST SODIUM
     Indication: MULTIPLE ALLERGIES
     Dosage: ?          QUANTITY:1 TABLET(S);?
  2. MONTELUKAST SOD (GENERIC FOR SINGULAIR) [Suspect]
     Active Substance: MONTELUKAST SODIUM
     Indication: ASTHMA
     Dosage: ?          QUANTITY:1 TABLET(S);?

REACTIONS (3)
  - Irritability [None]
  - Emotional distress [None]
  - Depression [None]

NARRATIVE: CASE EVENT DATE: 20210505
